FAERS Safety Report 4901521-5 (Version None)
Quarter: 2006Q1

REPORT INFORMATION
  Report Type: 
  Country: None (occurrence: None)
  Receive Date: 20060206
  Receipt Date: 20010613
  Transmission Date: 20060701
  Serious: No
  Sender: FDA-Public Use
  Company Number: US-BRISTOL-MYERS SQUIBB COMPANY-10876878

PATIENT
  Age: 50 Year
  Sex: Female

DRUGS (5)
  1. TAXOL [Suspect]
     Dosage: ^PLANNED ON AN 3 TO 4 WEEK SCHEDULE^
     Route: 042
  2. ZANTAC [Concomitant]
     Indication: PREMEDICATION
     Route: 042
  3. ANZEMET [Concomitant]
     Indication: PREMEDICATION
     Route: 042
  4. BENADRYL [Concomitant]
     Indication: PREMEDICATION
     Route: 042
  5. DECADRON PHOSPHATE [Concomitant]
     Indication: PREMEDICATION
     Route: 042

REACTIONS (1)
  - HYPERSENSITIVITY [None]
